FAERS Safety Report 25341473 (Version 1)
Quarter: 2025Q2

REPORT INFORMATION
  Report Type: Spontaneous
  Country: CA (occurrence: CA)
  Receive Date: 20250521
  Receipt Date: 20250521
  Transmission Date: 20250716
  Serious: Yes (Hospitalization, Other)
  Sender: PFIZER
  Company Number: CA-BRISTOL-MYERS SQUIBB COMPANY-2024-171272

PATIENT
  Age: 84 Year
  Sex: Female
  Weight: 67 kg

DRUGS (2)
  1. APIXABAN [Suspect]
     Active Substance: APIXABAN
     Dosage: 10 MG, 2X/DAY
  2. FRAGMIN [Suspect]
     Active Substance: DALTEPARIN SODIUM
     Dosage: SOLUTION INTRAVENOUS
     Route: 058

REACTIONS (9)
  - Angiogram [Unknown]
  - Therapeutic embolisation [Unknown]
  - Transfusion [Unknown]
  - Vena cava filter insertion [Unknown]
  - Abdominal wall haematoma [Recovered/Resolved]
  - Haemoglobin decreased [Recovered/Resolved]
  - Retroperitoneal haematoma [Recovered/Resolved]
  - Hypotension [Recovered/Resolved]
  - Off label use [Unknown]
